FAERS Safety Report 17568377 (Version 1)
Quarter: 2020Q1

REPORT INFORMATION
  Report Type: Spontaneous
  Country: US (occurrence: US)
  Receive Date: 20200320
  Receipt Date: 20200320
  Transmission Date: 20200409
  Serious: Yes (Life-Threatening, Hospitalization, Other)
  Sender: FDA-Public Use
  Company Number: US-PFIZER INC-2020002011

PATIENT
  Age: 77 Year
  Sex: Female
  Weight: 80.74 kg

DRUGS (2)
  1. XELJANZ XR [Suspect]
     Active Substance: TOFACITINIB CITRATE
     Indication: RHEUMATOID ARTHRITIS
     Dosage: 11 MG, 1X/DAY
     Route: 048
     Dates: start: 2019, end: 20200312
  2. METHOTREXATE. [Concomitant]
     Active Substance: METHOTREXATE
     Indication: RHEUMATOID ARTHRITIS
     Dosage: 25 MG, WEEKLY

REACTIONS (6)
  - Pulmonary thrombosis [Unknown]
  - Thrombosis [Unknown]
  - Coronary artery thrombosis [Unknown]
  - Fall [Recovering/Resolving]
  - Cardiac arrest [Recovered/Resolved with Sequelae]
  - Hip fracture [Recovering/Resolving]

NARRATIVE: CASE EVENT DATE: 20200224
